FAERS Safety Report 6486561-X (Version None)
Quarter: 2009Q4

REPORT INFORMATION
  Report Type: 
  Country: None (occurrence: None)
  Receive Date: 20091209
  Receipt Date: 20091209
  Transmission Date: 20100525
  Serious: Yes (Other)
  Sender: FDA-Public Use
  Company Number: None

PATIENT
  Age: 24 Year
  Sex: Male
  Weight: 65.7716 kg

DRUGS (1)
  1. CLARAVIS [Suspect]
     Indication: ACNE
     Dosage: 2 CAPSULES BY MOUTH ONCE DAILY; 60 EVERY MONTH PO
     Route: 048
     Dates: start: 20090320, end: 20090630

REACTIONS (5)
  - BONE PAIN [None]
  - DISTURBANCE IN ATTENTION [None]
  - SCAR [None]
  - SKIN DISORDER [None]
  - SKIN HYPERTROPHY [None]
